FAERS Safety Report 21424315 (Version 1)
Quarter: 2022Q4

REPORT INFORMATION
  Report Type: Report from Study
  Country: FR (occurrence: FR)
  Receive Date: 20221007
  Receipt Date: 20221007
  Transmission Date: 20230112
  Serious: Yes (Hospitalization)
  Sender: FDA-Public Use
  Company Number: FR-JNJFOC-20220702565

PATIENT
  Age: 71 Year
  Sex: Female
  Weight: 68 kg

DRUGS (8)
  1. DARATUMUMAB [Suspect]
     Active Substance: DARATUMUMAB
     Indication: Chronic lymphocytic leukaemia
     Dosage: DATE OF LAST DOSE BEFORE SAE: 20-JUN-2022
     Route: 041
     Dates: start: 20201019
  2. IBRUTINIB [Suspect]
     Active Substance: IBRUTINIB
     Indication: Chronic lymphocytic leukaemia
     Route: 048
     Dates: start: 20200921, end: 20220620
  3. NEBIVOLOL [Concomitant]
     Active Substance: NEBIVOLOL
  4. KARDEGIC [Concomitant]
     Active Substance: ASPIRIN DL-LYSINE
  5. VALACYCLOVIR HYDROCHLORIDE [Concomitant]
     Active Substance: VALACYCLOVIR HYDROCHLORIDE
  6. BACTRIM [Concomitant]
     Active Substance: SULFAMETHOXAZOLE\TRIMETHOPRIM
  7. FERROUS SULFATE [Concomitant]
     Active Substance: FERROUS SULFATE
  8. ERGOCALCIFEROL [Concomitant]
     Active Substance: ERGOCALCIFEROL

REACTIONS (1)
  - COVID-19 pneumonia [Recovered/Resolved]

NARRATIVE: CASE EVENT DATE: 20220621
